FAERS Safety Report 26215771 (Version 1)
Quarter: 2025Q4

REPORT INFORMATION
  Report Type: Spontaneous
  Country: JP (occurrence: JP)
  Receive Date: 20251231
  Receipt Date: 20251231
  Transmission Date: 20260117
  Serious: Yes (Other)
  Sender: BEIGENE
  Company Number: JP-BEONEMEDICINES-BGN-2025-023944

PATIENT
  Age: 8 Decade
  Sex: Male

DRUGS (4)
  1. TEVIMBRA [Suspect]
     Active Substance: TISLELIZUMAB-JSGR
     Indication: Oesophageal carcinoma
     Dosage: 200 MILLIGRAM, BODY
     Dates: start: 20250912, end: 20251127
  2. TEVIMBRA [Suspect]
     Active Substance: TISLELIZUMAB-JSGR
     Dosage: 200 MILLIGRAM, BODY
     Dates: start: 20250912, end: 20251127
  3. TEVIMBRA [Suspect]
     Active Substance: TISLELIZUMAB-JSGR
     Dosage: 200 MILLIGRAM, BODY
     Dates: start: 20250912, end: 20251127
  4. TEVIMBRA [Suspect]
     Active Substance: TISLELIZUMAB-JSGR
     Dosage: 200 MILLIGRAM, BODY
     Dates: start: 20250912, end: 20251127

REACTIONS (1)
  - Neoplasm progression [Unknown]
